FAERS Safety Report 4880806-5 (Version None)
Quarter: 2006Q1

REPORT INFORMATION
  Report Type: 
  Country: None (occurrence: None)
  Receive Date: 20060111
  Receipt Date: 20051209
  Transmission Date: 20060701
  Serious: No
  Sender: FDA-Public Use
  Company Number: 2005S1000027

PATIENT
  Age: 88 Year
  Weight: 72.3 kg

DRUGS (18)
  1. CUBICIN [Suspect]
     Indication: DEVICE RELATED INFECTION
     Dosage: 300 MG;Q24H;IV
     Route: 042
     Dates: start: 20050131, end: 20050204
  2. CUBICIN [Suspect]
     Indication: STAPHYLOCOCCAL INFECTION
     Dosage: 300 MG;Q24H;IV
     Route: 042
     Dates: start: 20050131, end: 20050204
  3. PRINIVIL [Concomitant]
  4. ZESTRIL [Concomitant]
  5. COZAAR [Concomitant]
  6. LASIX [Concomitant]
  7. POTASSIUM CHLORIDE [Concomitant]
  8. SYNTHROID [Concomitant]
  9. COLCHICINE [Concomitant]
  10. PROTONIX [Concomitant]
  11. PREMARIN [Concomitant]
  12. LOVENOX [Concomitant]
  13. MULTI-VITAMIN [Concomitant]
  14. VANCOMYCIN [Concomitant]
  15. MAXIPIME [Concomitant]
  16. DIFLUCAN [Concomitant]
  17. ZYVOX [Concomitant]
  18. BACTRIM [Concomitant]

REACTIONS (1)
  - BLOOD CREATININE INCREASED [None]
